FAERS Safety Report 14941057 (Version 2)
Quarter: 2018Q3

REPORT INFORMATION
  Report Type: Report from Study
  Country: None (occurrence: US)
  Receive Date: 20180525
  Receipt Date: 20180706
  Transmission Date: 20181010
  Serious: Yes (Death)
  Sender: FDA-Public Use
  Company Number: US-BAUSCH-BL-2018-015189

PATIENT
  Sex: Male
  Weight: 115.32 kg

DRUGS (2)
  1. XIFAXAN [Suspect]
     Active Substance: RIFAXIMIN
     Indication: LIVER DISORDER
  2. XIFAXAN [Suspect]
     Active Substance: RIFAXIMIN
     Indication: HYPERAMMONAEMIA
     Route: 048
     Dates: start: 20170508, end: 201805

REACTIONS (3)
  - Pyrexia [Fatal]
  - Infection in an immunocompromised host [Fatal]
  - Complications of transplanted liver [Fatal]
